FAERS Safety Report 9919709 (Version 2)
Quarter: 2014Q1

REPORT INFORMATION
  Report Type: Spontaneous
  Country: AU (occurrence: AU)
  Receive Date: 20140224
  Receipt Date: 20140228
  Transmission Date: 20141002
  Serious: Yes (Other)
  Sender: FDA-Public Use
  Company Number: PHHY2014AU020930

PATIENT
  Age: 70 Year
  Sex: Female
  Weight: 92.5 kg

DRUGS (7)
  1. ACLASTA [Suspect]
     Indication: OSTEOPOROSIS
     Dosage: 5 MG, UNK
     Route: 042
     Dates: start: 201303
  2. ACLASTA [Suspect]
     Dosage: 5 MG, UNK
     Route: 042
  3. ACLASTA [Suspect]
     Dosage: 5 MG, UNK
     Route: 042
  4. ATACAND PLUS [Concomitant]
     Indication: HYPERTENSION
     Dosage: UNK UKN, QD
     Route: 048
     Dates: start: 2002
  5. FELODUR [Concomitant]
     Indication: HYPERTENSION
     Dosage: UNK UKN, QD
     Route: 048
     Dates: start: 2001
  6. ZOCOR [Concomitant]
     Dosage: UNK UKN, QD
     Route: 048
     Dates: start: 2005
  7. METHOTREXATE [Concomitant]
     Indication: RHEUMATOID ARTHRITIS
     Dosage: 2.5 MG, QW
     Dates: start: 2002

REACTIONS (3)
  - Deep vein thrombosis [Recovering/Resolving]
  - Thrombosis [Unknown]
  - Local swelling [Unknown]
